FAERS Safety Report 7970746-7 (Version None)
Quarter: 2011Q4

REPORT INFORMATION
  Report Type: 
  Country: None (occurrence: None)
  Receive Date: 20111212
  Receipt Date: 20111206
  Transmission Date: 20120403
  Serious: Yes (Hospitalization)
  Sender: FDA-Public Use
  Company Number: US-DX529-2011DX000080

PATIENT
  Age: 37 Year
  Sex: Male

DRUGS (1)
  1. KALBITOR [Suspect]
     Indication: HEREDITARY ANGIOEDEMA
     Route: 058
     Dates: start: 20110601

REACTIONS (2)
  - ROAD TRAFFIC ACCIDENT [None]
  - ALCOHOL POISONING [None]
